FAERS Safety Report 7442363-9 (Version None)
Quarter: 2011Q2

REPORT INFORMATION
  Report Type: 
  Country: None (occurrence: None)
  Receive Date: 20110428
  Receipt Date: 20110420
  Transmission Date: 20111010
  Serious: Yes (Hospitalization)
  Sender: FDA-Public Use
  Company Number: CO-ROCHE-751079

PATIENT
  Sex: Female

DRUGS (1)
  1. CELLCEPT [Suspect]
     Indication: LUNG TRANSPLANT
     Dosage: FREQUENCY: QD
     Route: 048
     Dates: start: 20070215

REACTIONS (1)
  - TRANSPLANT REJECTION [None]
